FAERS Safety Report 11632617 (Version 2)
Quarter: 2015Q4

REPORT INFORMATION
  Report Type: Report from Study
  Country: US (occurrence: US)
  Receive Date: 20151015
  Receipt Date: 20151030
  Transmission Date: 20160304
  Serious: Yes (Hospitalization)
  Sender: FDA-Public Use
  Company Number: US-BIOGENIDEC-2015BI135391

PATIENT
  Age: 62 Year
  Sex: Female
  Weight: 69 kg

DRUGS (12)
  1. TECFIDERA [Suspect]
     Active Substance: DIMETHYL FUMARATE
     Indication: ILL-DEFINED DISORDER
     Route: 048
     Dates: start: 20150803
  2. ZOLPIDEM [Concomitant]
     Active Substance: ZOLPIDEM\ZOLPIDEM TARTRATE
     Dates: start: 20120829
  3. DEXAMETHASON [Concomitant]
     Active Substance: DEXAMETHASONE
  4. FLUOXETINE [Concomitant]
     Active Substance: FLUOXETINE HYDROCHLORIDE
  5. AZOPT SUS 1% OP [Concomitant]
  6. ZOLPIDEM [Concomitant]
     Active Substance: ZOLPIDEM\ZOLPIDEM TARTRATE
  7. LATANOPROST SOL 0.005% [Concomitant]
  8. TECFIDERA [Suspect]
     Active Substance: DIMETHYL FUMARATE
     Indication: ILL-DEFINED DISORDER
     Route: 048
     Dates: end: 20150917
  9. PREDNISOLONE SUS 1% OP [Concomitant]
  10. TECFIDERA [Suspect]
     Active Substance: DIMETHYL FUMARATE
     Indication: ILL-DEFINED DISORDER
     Dates: end: 20150922
  11. SOD SULFACET SOL 10% OP [Concomitant]
     Dates: start: 20081004
  12. GABAPENTIN. [Concomitant]
     Active Substance: GABAPENTIN

REACTIONS (1)
  - B-cell lymphoma [Not Recovered/Not Resolved]

NARRATIVE: CASE EVENT DATE: 20150917
